FAERS Safety Report 4647584-6 (Version None)
Quarter: 2005Q2

REPORT INFORMATION
  Report Type: 
  Country: None (occurrence: None)
  Receive Date: 20050427
  Receipt Date: 20050427
  Transmission Date: 20051028
  Serious: Yes (Other)
  Sender: FDA-Public Use
  Company Number: None

PATIENT
  Age: 37 Year
  Sex: Male
  Weight: 68.9467 kg

DRUGS (9)
  1. RISPERIDONE [Suspect]
     Indication: SCHIZOAFFECTIVE DISORDER
     Dosage: 4MG PO QHS
     Route: 048
     Dates: start: 20050106, end: 20050210
  2. RISPERIDONE [Suspect]
     Indication: SCHIZOAFFECTIVE DISORDER
     Dosage: 3MG PO QHS
     Route: 048
     Dates: start: 20050210, end: 20050228
  3. HALOPERIDOL [Concomitant]
  4. LORAZEPAM [Concomitant]
  5. BENZTROPINE [Concomitant]
  6. DEPAKENE [Concomitant]
  7. HYDROXYZINE PAMOATE [Concomitant]
  8. CLOZAPINE [Concomitant]
  9. LAMICTAL [Concomitant]

REACTIONS (2)
  - DYSKINESIA [None]
  - TONGUE DISORDER [None]
